FAERS Safety Report 18133315 (Version 1)
Quarter: 2020Q3

REPORT INFORMATION
  Report Type: Spontaneous
  Country: BR (occurrence: BR)
  Receive Date: 20200811
  Receipt Date: 20200811
  Transmission Date: 20201103
  Serious: Yes (Hospitalization)
  Sender: FDA-Public Use
  Company Number: BR-TORRENT-00005412

PATIENT
  Age: 22 Year
  Sex: Female

DRUGS (1)
  1. LAMITOR CD [Suspect]
     Active Substance: LAMOTRIGINE
     Indication: SEIZURE
     Dosage: DISPERSIBLE TABLET
     Route: 065
     Dates: start: 20200727

REACTIONS (3)
  - Oedema [Unknown]
  - Stevens-Johnson syndrome [Not Recovered/Not Resolved]
  - Skin reaction [Unknown]

NARRATIVE: CASE EVENT DATE: 2020
